FAERS Safety Report 4410048-9 (Version None)
Quarter: 2004Q3

REPORT INFORMATION
  Report Type: 
  Country: None (occurrence: None)
  Receive Date: 20040726
  Receipt Date: 20040715
  Transmission Date: 20050211
  Serious: Yes (Hospitalization)
  Sender: FDA-Public Use
  Company Number: 200111251BVD

PATIENT
  Age: 33 Year
  Sex: Male
  Weight: 74 kg

DRUGS (1)
  1. AVELOX [Suspect]
     Indication: SINUSITIS
     Dosage: 400 MG , TOTAL DAILY,ORAL
     Route: 048
     Dates: start: 20010610, end: 20010617

REACTIONS (4)
  - ANAEMIA HAEMOLYTIC AUTOIMMUNE [None]
  - ANAEMIA MACROCYTIC [None]
  - CASTLEMAN'S DISEASE [None]
  - LYMPHOMA [None]
